FAERS Safety Report 13719949 (Version 3)
Quarter: 2017Q4

REPORT INFORMATION
  Report Type: Report from Study
  Country: None (occurrence: CA)
  Receive Date: 20170705
  Receipt Date: 20171204
  Transmission Date: 20180320
  Serious: Yes (Hospitalization, Other)
  Sender: FDA-Public Use
  Company Number: CA-ABBVIE-17K-028-2023422-00

PATIENT
  Age: 28 Year
  Sex: Female
  Weight: 147.55 kg

DRUGS (3)
  1. HUMIRA [Suspect]
     Active Substance: ADALIMUMAB
     Indication: HIDRADENITIS
     Route: 058
     Dates: start: 20160513, end: 2017
  2. HUMIRA [Suspect]
     Active Substance: ADALIMUMAB
     Route: 058
     Dates: start: 20170622, end: 2017
  3. HUMIRA [Suspect]
     Active Substance: ADALIMUMAB
     Dosage: ALTERNATES 40 MG WEEKLY THEN 80 MG WEEKLY
     Route: 058
     Dates: start: 2017

REACTIONS (4)
  - Pneumonia [Recovered/Resolved]
  - Intentional product misuse [Not Recovered/Not Resolved]
  - Hidradenitis [Recovered/Resolved]
  - Procedural pneumothorax [Recovered/Resolved]

NARRATIVE: CASE EVENT DATE: 2017
